FAERS Safety Report 11368077 (Version 1)
Quarter: 2015Q3

REPORT INFORMATION
  Report Type: Spontaneous
  Country: US (occurrence: US)
  Receive Date: 20150811
  Receipt Date: 20150811
  Transmission Date: 20151125
  Serious: No
  Sender: FDA-Public Use
  Company Number: US-ELI_LILLY_AND_COMPANY-US201401000443

PATIENT
  Sex: Male

DRUGS (8)
  1. HYDROCHLOROTHIAZIDE. [Concomitant]
     Active Substance: HYDROCHLOROTHIAZIDE
     Dosage: 25 MG, UNKNOWN
  2. COREG [Concomitant]
     Active Substance: CARVEDILOL
     Dosage: 25 MG, UNKNOWN
  3. AXIRON [Suspect]
     Active Substance: TESTOSTERONE
     Indication: BLOOD TESTOSTERONE DECREASED
     Dosage: UNK
     Dates: start: 201310
  4. PREDNISONE. [Concomitant]
     Active Substance: PREDNISONE
     Dosage: 10 MG, UNKNOWN
  5. COUMADIN [Concomitant]
     Active Substance: WARFARIN SODIUM
  6. LISINOPRIL. [Concomitant]
     Active Substance: LISINOPRIL
     Dosage: 40 MG, UNKNOWN
  7. SOMATROPIN [Concomitant]
     Active Substance: SOMATROPIN
     Dosage: 0.06 UNK, UNK
  8. NEXIUM [Concomitant]
     Active Substance: ESOMEPRAZOLE MAGNESIUM

REACTIONS (3)
  - Peripheral swelling [Unknown]
  - Fatigue [Unknown]
  - Drug ineffective [Unknown]
